FAERS Safety Report 8773255 (Version 5)
Quarter: 2012Q4

REPORT INFORMATION
  Report Type: Report from Study
  Country: AU (occurrence: AU)
  Receive Date: 20120907
  Receipt Date: 20121024
  Transmission Date: 20130627
  Serious: Yes (Hospitalization, Other)
  Sender: FDA-Public Use
  Company Number: AU-SANOFI-AVENTIS-2012SA056783

PATIENT
  Age: 77 Year
  Sex: Male
  Weight: 91 kg

DRUGS (18)
  1. CABAZITAXEL [Suspect]
     Indication: PROSTATE CANCER METASTATIC
     Route: 042
     Dates: start: 20120208, end: 20120208
  2. CABAZITAXEL [Suspect]
     Indication: PROSTATE CANCER METASTATIC
     Route: 042
     Dates: start: 20120804, end: 20120804
  3. PREDNISONE [Suspect]
     Indication: PROSTATE CANCER METASTATIC
     Route: 048
     Dates: start: 20120208, end: 20120804
  4. FRUSEMIDE [Concomitant]
     Route: 048
     Dates: start: 1992
  5. ATENOLOL [Concomitant]
     Route: 048
     Dates: start: 2002
  6. METFORMIN [Concomitant]
     Route: 048
     Dates: start: 2007
  7. ALLOPURINOL [Concomitant]
     Route: 048
     Dates: start: 1992
  8. LERCANIDIPINE HYDROCHLORIDE [Concomitant]
     Route: 048
     Dates: start: 2008
  9. PERINDOPRIL ERBUMINE [Concomitant]
     Route: 048
     Dates: start: 2002
  10. POTASSIUM CHLORIDE [Concomitant]
     Route: 048
     Dates: start: 2007
  11. INDAPAMIDE HEMIHYDRATE [Concomitant]
     Route: 048
     Dates: start: 2002
  12. PRAZOSIN HYDROCHLORIDE [Concomitant]
     Route: 048
     Dates: start: 2007
  13. ATORVASTATIN [Concomitant]
     Route: 048
     Dates: start: 2002
  14. BUDESONIDE/FORMOTEROL [Concomitant]
     Route: 055
     Dates: start: 201111
  15. ASPIRIN [Concomitant]
     Route: 048
     Dates: start: 2002
  16. ZOMETA [Concomitant]
     Route: 048
     Dates: start: 20100701
  17. NYSTATIN [Concomitant]
     Route: 048
     Dates: start: 20120725
  18. PRAMIN [Concomitant]
     Route: 048
     Dates: start: 20120725

REACTIONS (3)
  - Small intestinal obstruction [Recovered/Resolved]
  - Colorectal cancer metastatic [Not Recovered/Not Resolved]
  - Neck pain [Recovered/Resolved]
